FAERS Safety Report 16285451 (Version 1)
Quarter: 2019Q2

REPORT INFORMATION
  Report Type: Spontaneous
  Country: US (occurrence: US)
  Receive Date: 20190402
  Receipt Date: 20190402
  Transmission Date: 20190711
  Serious: Yes (Death)
  Sender: FDA-Public Use
  Company Number: None

PATIENT
  Age: 3 Year
  Sex: Male

DRUGS (17)
  1. TRACLEER [Suspect]
     Active Substance: BOSENTAN
     Indication: CONNECTIVE TISSUE DISORDER
     Route: 048
     Dates: start: 201604, end: 201903
  2. LEVOTHYROXINE. [Concomitant]
     Active Substance: LEVOTHYROXINE
  3. CLONIDINE PATCH [Concomitant]
     Active Substance: CLONIDINE
  4. IPRATROPIUM INHL SOLN [Concomitant]
  5. POLY-VI-SOL [Concomitant]
     Active Substance: VITAMINS
  6. LEVETIRACETAM. [Concomitant]
     Active Substance: LEVETIRACETAM
  7. OMEPRAZOLE. [Concomitant]
     Active Substance: OMEPRAZOLE
  8. DIAZEPAM. [Concomitant]
     Active Substance: DIAZEPAM
  9. TRACLEER [Suspect]
     Active Substance: BOSENTAN
     Indication: PULMONARY ARTERIAL HYPERTENSION
     Route: 048
     Dates: start: 201604, end: 201903
  10. LEVALBUTEROL INHL NEB SOLN [Concomitant]
  11. LACTOBACILLUS ACIDOPHILUS\LACTOBACILLUS BULGARICUS [Concomitant]
     Active Substance: LACTOBACILLUS ACIDOPHILUS\LACTOBACILLUS DELBRUECKII SUBSP. BULGARICUS
  12. BACLOFEN. [Concomitant]
     Active Substance: BACLOFEN
  13. LACTULOSE. [Concomitant]
     Active Substance: LACTULOSE
  14. HYDROCORTISONE ORAL SUSP [Concomitant]
  15. SENNOSIDES. [Concomitant]
     Active Substance: SENNOSIDES
  16. FERROUS SULFATE. [Concomitant]
     Active Substance: FERROUS SULFATE
  17. DRIPDROP ORAL PWD PKT [Concomitant]

REACTIONS (1)
  - Death [None]
